FAERS Safety Report 4471029-2 (Version None)
Quarter: 2004Q4

REPORT INFORMATION
  Report Type: 
  Country: None (occurrence: None)
  Receive Date: 20041011
  Receipt Date: 20040419
  Transmission Date: 20050328
  Serious: Yes (Hospitalization)
  Sender: FDA-Public Use
  Company Number: JP-GLAXOSMITHKLINE-B0330516A

PATIENT
  Age: 82 Year
  Sex: Female

DRUGS (6)
  1. ZOVIRAX [Suspect]
     Indication: HERPES ZOSTER
     Dosage: 2000MG TWICE PER DAY
     Route: 048
  2. NORVASC [Concomitant]
     Route: 048
  3. MUCOSTA [Concomitant]
     Route: 048
  4. CEREKINON [Concomitant]
     Route: 048
  5. LAC B [Concomitant]
     Route: 048
  6. LAXOBERON [Concomitant]
     Route: 048

REACTIONS (5)
  - DEPRESSED LEVEL OF CONSCIOUSNESS [None]
  - HAEMODIALYSIS [None]
  - MENTAL DISORDER [None]
  - NERVOUS SYSTEM DISORDER [None]
  - THERAPEUTIC AGENT TOXICITY [None]
